FAERS Safety Report 8001152-7 (Version None)
Quarter: 2011Q4

REPORT INFORMATION
  Report Type: 
  Country: None (occurrence: None)
  Receive Date: 20111220
  Receipt Date: 20111216
  Transmission Date: 20120403
  Serious: Yes (Other)
  Sender: FDA-Public Use
  Company Number: 1000025124

PATIENT
  Age: 25 Year
  Sex: Female

DRUGS (2)
  1. SAVELLA [Suspect]
  2. CELEXA [Concomitant]

REACTIONS (3)
  - IMPULSIVE BEHAVIOUR [None]
  - SHOPLIFTING [None]
  - LEGAL PROBLEM [None]
